FAERS Safety Report 9437963 (Version 1)
Quarter: 2013Q3

REPORT INFORMATION
  Report Type: Spontaneous
  Country: US (occurrence: None)
  Receive Date: 20130802
  Receipt Date: 20130802
  Transmission Date: 20140515
  Serious: Yes (Hospitalization, Disabling)
  Sender: FDA-Public Use
  Company Number: None

PATIENT
  Age: 36 None
  Sex: Female
  Weight: 74.84 kg

DRUGS (7)
  1. CYMBALTA [Suspect]
     Indication: OSTEOARTHRITIS
     Route: 048
     Dates: start: 20130211, end: 20130520
  2. BENICAR [Concomitant]
  3. CLONAZEPAM [Concomitant]
  4. LUNESTA [Concomitant]
  5. B12 [Concomitant]
  6. COQ10 [Concomitant]
  7. MULTI VITAMIN [Concomitant]

REACTIONS (28)
  - Pneumonia [None]
  - Hypotension [None]
  - Memory impairment [None]
  - Nausea [None]
  - Pruritus [None]
  - Hyperhidrosis [None]
  - Dizziness [None]
  - Headache [None]
  - Fatigue [None]
  - Constipation [None]
  - Diarrhoea [None]
  - Faeces discoloured [None]
  - Paraesthesia [None]
  - Paraesthesia [None]
  - Muscle spasms [None]
  - Decreased appetite [None]
  - Disturbance in attention [None]
  - Abnormal dreams [None]
  - Nightmare [None]
  - Agitation [None]
  - Anger [None]
  - Parosmia [None]
  - Post-traumatic stress disorder [None]
  - Vision blurred [None]
  - Balance disorder [None]
  - Withdrawal syndrome [None]
  - Photophobia [None]
  - Hyperacusis [None]
